FAERS Safety Report 9221636 (Version 1)
Quarter: 2013Q1

REPORT INFORMATION
  Report Type: Spontaneous
  Country: US (occurrence: None)
  Receive Date: 20120831
  Receipt Date: 20120831
  Transmission Date: 20140127
  Serious: No
  Sender: FDA-Public Use
  Company Number: 163-22393-12071115

PATIENT
  Age: 39 Year
  Sex: Female

DRUGS (1)
  1. ISTODAX [Suspect]
     Indication: PERIPHERAL T-CELL LYMPHOMA UNSPECIFIED RECURRENT
     Dosage: 14 MG/M2, ONCE PER WEEK FOR 3 WEEKS, 1 WEEK OFF, IV
     Route: 042

REACTIONS (1)
  - Therapeutic response unexpected [None]
